FAERS Safety Report 21648319 (Version 1)
Quarter: 2022Q4

REPORT INFORMATION
  Report Type: Spontaneous
  Country: US (occurrence: None)
  Receive Date: 20221128
  Receipt Date: 20221128
  Transmission Date: 20230113
  Serious: No
  Sender: FDA-Public Use
  Company Number: 2022A370919

PATIENT
  Age: 904 Month
  Sex: Female
  Weight: 93 kg

DRUGS (1)
  1. BRILINTA [Suspect]
     Active Substance: TICAGRELOR
     Indication: Stent placement
     Route: 048
     Dates: start: 20221025

REACTIONS (4)
  - Sleep disorder [Unknown]
  - Arthralgia [Unknown]
  - Dyspnoea [Recovering/Resolving]
  - Blood blister [Unknown]

NARRATIVE: CASE EVENT DATE: 20221001
